FAERS Safety Report 8417800-3 (Version None)
Quarter: 2012Q2

REPORT INFORMATION
  Report Type: 
  Country: None (occurrence: None)
  Receive Date: 20120607
  Receipt Date: 20120524
  Transmission Date: 20120825
  Serious: Yes (Other)
  Sender: FDA-Public Use
  Company Number: DE-RANBAXY-2012RR-56973

PATIENT
  Sex: Female

DRUGS (1)
  1. OFLOXACIN [Suspect]
     Indication: CYSTITIS NONINFECTIVE
     Route: 065

REACTIONS (3)
  - HAEMATOMA [None]
  - TENDON RUPTURE [None]
  - LIGAMENT SPRAIN [None]
